FAERS Safety Report 11121567 (Version 3)
Quarter: 2015Q2

REPORT INFORMATION
  Report Type: Report from Study
  Country: ZA (occurrence: ZA)
  Receive Date: 20150519
  Receipt Date: 20150615
  Transmission Date: 20150821
  Serious: Yes (Death, Hospitalization, Other)
  Sender: FDA-Public Use
  Company Number: ZA-AMGEN-ZAFSL2015047513

PATIENT
  Age: 65 Year
  Sex: Male
  Weight: 118 kg

DRUGS (13)
  1. PLAVIX [Concomitant]
     Active Substance: CLOPIDOGREL BISULFATE
     Dosage: 75 MG, QD
     Route: 048
  2. KAYEXALATE [Concomitant]
     Active Substance: SODIUM POLYSTYRENE SULFONATE
     Dosage: 30 MG, BID
     Route: 048
  3. SENSIPAR [Suspect]
     Active Substance: CINACALCET HYDROCHLORIDE
     Indication: PRODUCT USED FOR UNKNOWN INDICATION
     Dosage: 60 MG, QD
     Route: 048
     Dates: start: 20140121, end: 201505
  4. FLOMAX [Concomitant]
     Active Substance: TAMSULOSIN HYDROCHLORIDE
     Dosage: 0.4 UNK, QD
     Route: 048
  5. COLCHICINE. [Concomitant]
     Active Substance: COLCHICINE
     Dosage: 0.5 MG, QD
     Route: 048
  6. ZYLOPRIM [Concomitant]
     Active Substance: ALLOPURINOL
     Dosage: 100 MG, QD
     Route: 048
  7. STILPANE                           /01152401/ [Concomitant]
     Dosage: 2 UNK, TID
     Route: 048
  8. TRAMCET [Concomitant]
     Active Substance: ACETAMINOPHEN\TRAMADOL
     Dosage: 2 UNK, TID
     Route: 048
  9. LYRICA [Concomitant]
     Active Substance: PREGABALIN
     Dosage: 25 MG, BID
     Route: 048
  10. SENOKOT [Concomitant]
     Active Substance: SENNOSIDES
     Dosage: 2 NOCTE, UNK
     Route: 048
  11. ENO TUMS [Concomitant]
     Dosage: 2 (X 180), TID
     Route: 048
  12. PHOSPHOSORB [Concomitant]
     Dosage: 2 (660), TID WITH MEALS
     Route: 048
  13. CRESTOR [Concomitant]
     Active Substance: ROSUVASTATIN CALCIUM
     Dosage: 10 MG, UNK
     Route: 048

REACTIONS (3)
  - Sepsis [Fatal]
  - Syncope [Unknown]
  - Malaise [Unknown]
